FAERS Safety Report 20662757 (Version 1)
Quarter: 2022Q1

REPORT INFORMATION
  Report Type: Spontaneous
  Country: US (occurrence: None)
  Receive Date: 20220331
  Receipt Date: 20220331
  Transmission Date: 20220423
  Serious: No
  Sender: FDA-Public Use
  Company Number: None

PATIENT
  Age: 43 Year
  Sex: Male
  Weight: 63 kg

DRUGS (1)
  1. UP AND UP ALLERGY RELIEF (CETIRIZINE HYDROCHLORIDE) [Suspect]
     Active Substance: CETIRIZINE HYDROCHLORIDE
     Indication: Seasonal allergy
     Dosage: OTHER QUANTITY : 1 TABLET(S);?FREQUENCY : DAILY;?
     Route: 048
     Dates: start: 20220328, end: 20220329

REACTIONS (3)
  - Heart rate increased [None]
  - Feeling jittery [None]
  - Muscle twitching [None]

NARRATIVE: CASE EVENT DATE: 20220328
